FAERS Safety Report 7189366-X (Version None)
Quarter: 2010Q4

REPORT INFORMATION
  Report Type: 
  Country: None (occurrence: None)
  Receive Date: 20101222
  Receipt Date: 20100827
  Transmission Date: 20110411
  Serious: No
  Sender: FDA-Public Use
  Company Number: US-AMGEN-KDL427518

PATIENT

DRUGS (12)
  1. ENBREL [Suspect]
     Indication: RHEUMATOID ARTHRITIS
     Dosage: 25 MG, QWK
     Route: 058
     Dates: start: 20040101
  2. ENBREL [Suspect]
     Indication: PSORIATIC ARTHROPATHY
  3. METHOCARBAMOL [Concomitant]
     Dosage: UNK UNK, UNK
     Dates: start: 20060718
  4. PREDNISONE [Concomitant]
     Dosage: UNK UNK, UNK
     Dates: start: 20040708
  5. NOVOLIN 70/30 [Concomitant]
     Dosage: UNK UNK, UNK
     Dates: start: 20100729
  6. LOSARTAN POTASSIUM [Concomitant]
     Dosage: UNK UNK, UNK
     Dates: start: 20100727
  7. LEFLUNOMIDE [Concomitant]
     Dosage: UNK UNK, UNK
     Dates: start: 20081215
  8. PANTOPRAZOLE SODIUM [Concomitant]
     Dosage: UNK UNK, UNK
     Dates: start: 20090924
  9. ESCITALOPRAM OXALATE [Concomitant]
     Dosage: UNK UNK, UNK
     Dates: start: 20081111
  10. ACETYLSALICYLIC ACID [Concomitant]
     Dosage: UNK UNK, UNK
     Dates: start: 20030724
  11. DILTIAZEM HYDROCHLORIDE [Concomitant]
     Dosage: UNK UNK, UNK
     Dates: start: 20030724
  12. CLOPIDOGREL BISULFATE [Concomitant]
     Dosage: UNK UNK, UNK
     Dates: start: 20030724

REACTIONS (3)
  - BREAST DISCHARGE [None]
  - BREAST ENGORGEMENT [None]
  - BREAST TENDERNESS [None]
